FAERS Safety Report 9803379 (Version 1)
Quarter: 2014Q1

REPORT INFORMATION
  Report Type: Spontaneous
  Country: GB (occurrence: GB)
  Receive Date: 20140108
  Receipt Date: 20140108
  Transmission Date: 20141002
  Serious: Yes (Other)
  Sender: FDA-Public Use
  Company Number: GB-TEVA-453790ISR

PATIENT
  Age: 34 Year
  Sex: Female
  Weight: 53.52 kg

DRUGS (6)
  1. NITROFURANTOIN [Suspect]
     Indication: CYSTITIS
     Route: 048
     Dates: start: 20130913, end: 20130913
  2. SODIUM CITRATE [Concomitant]
  3. UVA URSI [Concomitant]
  4. ANADIN EXTRA [Concomitant]
  5. NUROFEN EXPRESS [Concomitant]
  6. TRIMETHOPRIM [Concomitant]

REACTIONS (13)
  - Neuropathy peripheral [Not Recovered/Not Resolved]
  - Dizziness [Not Recovered/Not Resolved]
  - Clumsiness [Not Recovered/Not Resolved]
  - Hypogeusia [Not Recovered/Not Resolved]
  - Anosmia [Not Recovered/Not Resolved]
  - Sensory loss [Not Recovered/Not Resolved]
  - Hypoaesthesia [Not Recovered/Not Resolved]
  - Paraesthesia [Not Recovered/Not Resolved]
  - Bradyphrenia [Not Recovered/Not Resolved]
  - Balance disorder [Not Recovered/Not Resolved]
  - Feeling cold [Not Recovered/Not Resolved]
  - Fatigue [Not Recovered/Not Resolved]
  - Emotional poverty [Not Recovered/Not Resolved]
